FAERS Safety Report 9006378 (Version 2)
Quarter: 2013Q1

REPORT INFORMATION
  Report Type: Spontaneous
  Country: DK (occurrence: None)
  Receive Date: 20121227
  Receipt Date: 20130118
  Transmission Date: 20140127
  Serious: Yes (Other)
  Sender: FDA-Public Use
  Company Number: 2012MA014232

PATIENT
  Age: 36 Year
  Sex: Female
  Weight: 74 kg

DRUGS (7)
  1. METFORMIN HYDROCHLORIDE EXTENDED RELEASE [Suspect]
     Indication: TYPE 2 DIABETES MELLITUS
     Route: 048
     Dates: start: 2005
  2. SIMVASTATIN (SIMVASTATIN) [Suspect]
     Indication: CHOLESTEROSIS
     Route: 048
     Dates: start: 2006
  3. VANIQA [Suspect]
     Indication: HIRSUTISM
     Route: 061
     Dates: start: 20120528
  4. SPIRIX [Suspect]
     Indication: HORMONE THERAPY
     Route: 048
     Dates: start: 2011
  5. YASMIN [Concomitant]
  6. HJERTEMAGNYL [Concomitant]
  7. PINEX [Concomitant]

REACTIONS (2)
  - Abortion spontaneous [None]
  - Exposure during pregnancy [None]
